FAERS Safety Report 9881048 (Version 1)
Quarter: 2014Q1

REPORT INFORMATION
  Report Type: Spontaneous
  Country: JP (occurrence: JP)
  Receive Date: 20140207
  Receipt Date: 20140207
  Transmission Date: 20141002
  Serious: Yes (Other)
  Sender: FDA-Public Use
  Company Number: JP-ASTELLAS-2014JP000950

PATIENT
  Age: 40 Year
  Sex: Female

DRUGS (6)
  1. PROGRAF [Suspect]
     Indication: PROPHYLAXIS AGAINST GRAFT VERSUS HOST DISEASE
     Dosage: UNK
     Route: 065
     Dates: start: 200903
  2. METHOTREXATE [Concomitant]
     Indication: PROPHYLAXIS AGAINST GRAFT VERSUS HOST DISEASE
     Dosage: UNK
     Route: 065
     Dates: start: 200903
  3. GRANULOCYTE COLONY-STIMULATING FACTOR NOS [Concomitant]
     Indication: PREMEDICATION
     Dosage: UNK
     Route: 065
     Dates: start: 20090303
  4. CYTARABINE [Concomitant]
     Indication: PREMEDICATION
     Dosage: UNK
     Route: 065
     Dates: start: 20090303
  5. CICLOSPORIN [Concomitant]
     Indication: PREMEDICATION
     Dosage: UNK
     Route: 065
     Dates: start: 20090303
  6. CICLOSPORIN [Concomitant]
     Route: 065

REACTIONS (3)
  - Drug ineffective [Unknown]
  - Chronic graft versus host disease [Recovering/Resolving]
  - Graft versus host disease [Recovered/Resolved]
